FAERS Safety Report 14415714 (Version 1)
Quarter: 2018Q1

REPORT INFORMATION
  Report Type: Report from Study
  Country: BR (occurrence: BR)
  Receive Date: 20180122
  Receipt Date: 20180122
  Transmission Date: 20180509
  Serious: Yes (Other)
  Sender: FDA-Public Use
  Company Number: BR-ROCHE-2058148

PATIENT
  Sex: Male
  Weight: 94 kg

DRUGS (3)
  1. LAMOTRIGINE. [Concomitant]
     Active Substance: LAMOTRIGINE
     Indication: BIPOLAR DISORDER
     Dosage: SINCE 20 YEARS AGO
     Route: 048
  2. XOLAIR [Suspect]
     Active Substance: OMALIZUMAB
     Indication: ASTHMA
     Dosage: (2 AMPOULES)
     Route: 058
  3. FOSTAIR [Concomitant]
     Active Substance: BECLOMETHASONE\FORMOTEROL
     Indication: ASTHMA
     Dosage: 5 YEARS AGO
     Route: 055

REACTIONS (3)
  - Hypoventilation [Unknown]
  - Obstructive airways disorder [Unknown]
  - Total lung capacity decreased [Recovering/Resolving]
